FAERS Safety Report 25963610 (Version 1)
Quarter: 2025Q4

REPORT INFORMATION
  Report Type: Spontaneous
  Country: MX (occurrence: MX)
  Receive Date: 20251027
  Receipt Date: 20251027
  Transmission Date: 20260118
  Serious: Yes (Other)
  Sender: DAITO PHARMACEUTICALS
  Company Number: MX-Daito Pharmaceutical Co., Ltd.-2187350

PATIENT
  Age: 11 Year
  Sex: Male

DRUGS (6)
  1. METHOTREXATE SODIUM [Suspect]
     Active Substance: METHOTREXATE SODIUM
     Indication: Burkitt^s lymphoma stage IV
  2. IFOSFAMIDE AND MESNA [Concomitant]
     Active Substance: IFOSFAMIDE\MESNA
  3. LEUCOVORIN [Concomitant]
     Active Substance: LEUCOVORIN\LEUCOVORIN CALCIUM
  4. ETOPOSIDE [Concomitant]
     Active Substance: ETOPOSIDE
  5. CYTARABINE [Concomitant]
     Active Substance: CYTARABINE
  6. VINCRISTINE [Concomitant]
     Active Substance: VINCRISTINE

REACTIONS (2)
  - Mucosal inflammation [Recovered/Resolved]
  - Mucocutaneous toxicity [Recovered/Resolved]
